FAERS Safety Report 13990460 (Version 1)
Quarter: 2017Q3

REPORT INFORMATION
  Report Type: Spontaneous
  Country: US (occurrence: US)
  Receive Date: 20170920
  Receipt Date: 20170920
  Transmission Date: 20171128
  Serious: No
  Sender: FDA-Public Use
  Company Number: US-TAKEDA-2017MPI007831

PATIENT
  Age: 74 Year
  Sex: Male

DRUGS (1)
  1. NINLARO [Suspect]
     Active Substance: IXAZOMIB
     Indication: PLASMACYTOMA
     Dosage: 3 MG, 1/WEEK
     Route: 048
     Dates: start: 20160804

REACTIONS (2)
  - Anaemia [Unknown]
  - White blood cell count decreased [Unknown]
